FAERS Safety Report 4831035-2 (Version None)
Quarter: 2005Q4

REPORT INFORMATION
  Report Type: 
  Country: None (occurrence: None)
  Receive Date: 20051118
  Receipt Date: 20050928
  Transmission Date: 20060501
  Serious: Yes (Hospitalization)
  Sender: FDA-Public Use
  Company Number: NL-BOEHRINGER INGELHEIM PHARMACEUTICALS, INC.-2005-BP-17783YA

PATIENT
  Sex: Male
  Weight: 74 kg

DRUGS (7)
  1. OMNIC CAPSULES [Suspect]
     Indication: PROSTATE EXAMINATION ABNORMAL
     Route: 048
     Dates: start: 20050905
  2. OMNIC CAPSULES [Suspect]
     Indication: POLYURIA
  3. DIOVAN HCT [Concomitant]
     Indication: HYPERTENSION
     Dosage: 1 DF
  4. AMLODIPINE [Concomitant]
     Indication: HYPERTENSION
     Dosage: 1 DF
  5. FLECAINIDE ACETATE [Concomitant]
     Indication: ARRHYTHMIA
     Dosage: 2 DF
  6. DIAZEPAM [Concomitant]
  7. ACETYLSALICYLIC ACID SRT [Concomitant]

REACTIONS (6)
  - ASTHENIA [None]
  - DIZZINESS [None]
  - FALL [None]
  - LOSS OF CONSCIOUSNESS [None]
  - MALAISE [None]
  - VOMITING [None]
